FAERS Safety Report 23612060 (Version 3)
Quarter: 2024Q2

REPORT INFORMATION
  Report Type: Report from Study
  Country: CA (occurrence: CA)
  Receive Date: 20240308
  Receipt Date: 20240520
  Transmission Date: 20240716
  Serious: Yes (Death)
  Sender: FDA-Public Use
  Company Number: CA-OTSUKA-2023_030799

PATIENT
  Sex: Male

DRUGS (17)
  1. ARIPIPRAZOLE [Suspect]
     Active Substance: ARIPIPRAZOLE
     Indication: Mania
     Dosage: 300 MG Q28 DAYS
     Route: 030
  2. ARIPIPRAZOLE [Suspect]
     Active Substance: ARIPIPRAZOLE
     Dosage: 400 MG EVERY 4 WEEKS (28 DAYS)
     Route: 030
     Dates: start: 20230928
  3. ABILIFY [Suspect]
     Active Substance: ARIPIPRAZOLE
     Indication: Product used for unknown indication
     Dosage: UNK
     Route: 048
  4. CITALOPRAM [Concomitant]
     Active Substance: CITALOPRAM\CITALOPRAM HYDROBROMIDE
     Indication: Major depression
     Dosage: 20 MG, QD
     Route: 048
  5. VITAMIN B12 [Concomitant]
     Active Substance: CYANOCOBALAMIN
     Indication: Product used for unknown indication
     Dosage: 1 TABLET (1000 MCG) ONE TIME EACH DAY
     Route: 048
  6. VITAMIN D3 [Concomitant]
     Active Substance: CHOLECALCIFEROL
     Indication: Product used for unknown indication
     Dosage: 1 CAPSULE (1000 UNITS) ONE TIME DAILY
     Route: 048
  7. VITAMINS [Concomitant]
     Active Substance: VITAMINS
     Indication: Product used for unknown indication
     Dosage: 1 TABLET ONE TIME EACH DAY
     Route: 048
  8. TYLENOL [Concomitant]
     Active Substance: ACETAMINOPHEN
     Indication: Pain
     Dosage: 500 MG (1 TABLET) ONE TIME EACH DAY IF NEEDED
     Route: 048
  9. ASPIRIN [Concomitant]
     Active Substance: ASPIRIN
     Indication: Product used for unknown indication
     Dosage: 81 MG (1 TABLET) FOUR TIMES A DAY IF NEEDED
     Route: 048
  10. RIVOTRIL [Concomitant]
     Active Substance: CLONAZEPAM
     Indication: Product used for unknown indication
     Dosage: 0.25 MG TWO TIMES A DAY FOR 5 DAYS
     Route: 048
  11. ADVIL [Concomitant]
     Active Substance: IBUPROFEN
     Indication: Pain
     Dosage: 400 MG (1 TABLET) ONE TIME EACH DAY IF NEEDED
     Route: 048
  12. TOUJEO [Concomitant]
     Active Substance: INSULIN GLARGINE
     Indication: Product used for unknown indication
     Dosage: INJECT 40 UNIT UNDER THE SKIN EVERY NIGHT
     Route: 065
  13. APIDRA SOLOSTAR [Concomitant]
     Active Substance: INSULIN GLULISINE
     Indication: Product used for unknown indication
     Dosage: 3 TIMES A DAY BEFORE MEAL
     Route: 065
  14. GLUCOPHAGE [Concomitant]
     Active Substance: METFORMIN HYDROCHLORIDE
     Indication: Product used for unknown indication
     Dosage: 500 MG (1 TABLET) TWO TIMES A DAY WITH MEALS
     Route: 048
  15. CRESTOR [Concomitant]
     Active Substance: ROSUVASTATIN CALCIUM
     Indication: Product used for unknown indication
     Dosage: 20 MG(1 TABLET) ONE TIME EACH DAY
     Route: 048
  16. ALTACE [Concomitant]
     Active Substance: RAMIPRIL
     Indication: Product used for unknown indication
     Dosage: 5 MG (1 TABLET) ONE TIME EACH DAY
     Route: 048
  17. INSULIN ASPART [Concomitant]
     Active Substance: INSULIN ASPART
     Indication: Product used for unknown indication
     Dosage: UNK
     Route: 065

REACTIONS (9)
  - Diabetic complication [Fatal]
  - Frustration tolerance decreased [Unknown]
  - Neglect of personal appearance [Unknown]
  - Insomnia [Unknown]
  - Underdose [Unknown]
  - Incorrect dose administered [Unknown]
  - Product dose omission issue [Unknown]
  - Therapy change [Unknown]
  - Product use in unapproved indication [Unknown]
